FAERS Safety Report 5570937-9 (Version None)
Quarter: 2007Q4

REPORT INFORMATION
  Report Type: 
  Country: None (occurrence: None)
  Receive Date: 20071221
  Receipt Date: 20071214
  Transmission Date: 20080405
  Serious: Yes (Hospitalization)
  Sender: FDA-Public Use
  Company Number: US-JNJFOC-20071204327

PATIENT
  Sex: Female
  Weight: 90.72 kg

DRUGS (10)
  1. FENTANYL TRANSDERMAL SYSTEM [Suspect]
     Route: 062
  2. FENTANYL TRANSDERMAL SYSTEM [Suspect]
     Route: 062
  3. FENTANYL TRANSDERMAL SYSTEM [Suspect]
     Indication: INTERVERTEBRAL DISC PROTRUSION
     Route: 062
  4. REMICADE [Concomitant]
     Indication: INTERVERTEBRAL DISC PROTRUSION
     Route: 065
  5. PROCARDIA [Concomitant]
     Indication: HYPERTENSION
     Route: 048
  6. POTASSIUM CHLORIDE [Concomitant]
     Indication: DRUG USE FOR UNKNOWN INDICATION
     Dosage: 2X60MG PER DAY
     Route: 048
  7. HYDROCHLOROTHIAZIDE [Concomitant]
     Route: 048
  8. PREVACID [Concomitant]
     Indication: GASTROOESOPHAGEAL REFLUX DISEASE
     Route: 048
  9. PERCOCET [Concomitant]
     Indication: BREAKTHROUGH PAIN
     Route: 048
  10. OPANA [Concomitant]
     Indication: BREAKTHROUGH PAIN
     Route: 048

REACTIONS (15)
  - ANOREXIA [None]
  - BLOOD CHOLESTEROL INCREASED [None]
  - EAR INFECTION [None]
  - FATIGUE [None]
  - HYPERTENSION [None]
  - INAPPROPRIATE SCHEDULE OF DRUG ADMINISTRATION [None]
  - INSOMNIA [None]
  - PNEUMONIA [None]
  - PRURITUS [None]
  - PRURITUS GENERALISED [None]
  - RESTLESS LEGS SYNDROME [None]
  - THERAPY CESSATION [None]
  - THYROID DISORDER [None]
  - VERTIGO [None]
  - WRONG TECHNIQUE IN DRUG USAGE PROCESS [None]
